FAERS Safety Report 10077361 (Version 2)
Quarter: 2014Q2

REPORT INFORMATION
  Report Type: Spontaneous
  Country: US (occurrence: US)
  Receive Date: 20140414
  Receipt Date: 20140414
  Transmission Date: 20141212
  Serious: No
  Sender: FDA-Public Use
  Company Number: US-BANPHARM-20131406

PATIENT
  Age: 73 Year
  Sex: Female
  Weight: 90.72 kg

DRUGS (11)
  1. ALEVE LIQUID GELS 220 MG [Suspect]
     Indication: PAIN
     Dosage: 2 DF, PRN,
     Route: 048
     Dates: start: 2012, end: 20130605
  2. LEVEMIR [Concomitant]
  3. HUMALOG [Concomitant]
  4. METFORMIN [Concomitant]
  5. DILTIAZEM [Concomitant]
  6. CRESTOR [Concomitant]
  7. THYROXINE [Concomitant]
  8. LOSARTIN [Concomitant]
  9. INDAPAMIDE [Concomitant]
  10. RANITIDINE [Concomitant]
  11. METAPROLOL [Concomitant]

REACTIONS (2)
  - Hyperhidrosis [Recovered/Resolved]
  - Incorrect dose administered [Unknown]
